FAERS Safety Report 12770788 (Version 1)
Quarter: 2016Q3

REPORT INFORMATION
  Report Type: Spontaneous
  Country: US (occurrence: US)
  Receive Date: 20160922
  Receipt Date: 20160922
  Transmission Date: 20161109
  Serious: No
  Sender: FDA-Public Use
  Company Number: US-LPDUSPRD-20150797

PATIENT
  Age: 41 Year
  Sex: Female
  Weight: 80.7 kg

DRUGS (3)
  1. BETAMETHASONE SODIUM PHOS/BETAMETHASONE ACETATE INJ SUSP, USP (40042-0 [Suspect]
     Active Substance: BETAMETHASONE ACETATE\BETAMETHASONE SODIUM PHOSPHATE
     Dosage: 12 MG
     Route: 042
     Dates: start: 20151009, end: 20151009
  2. ZITHROMAX [Concomitant]
     Active Substance: AZITHROMYCIN DIHYDRATE
     Dosage: 500 MG UNKNOWN FREQUENCY
     Route: 065
  3. AMPICILLING [Concomitant]
     Dosage: 2 GM AT UNKNOWN FREQUENCY
     Route: 065

REACTIONS (3)
  - Exposure during pregnancy [Unknown]
  - Incorrect route of drug administration [Unknown]
  - No adverse event [Unknown]

NARRATIVE: CASE EVENT DATE: 20151009
